FAERS Safety Report 12433490 (Version 2)
Quarter: 2016Q3

REPORT INFORMATION
  Report Type: Spontaneous
  Country: GR (occurrence: GR)
  Receive Date: 20160603
  Receipt Date: 20160722
  Transmission Date: 20161109
  Serious: Yes (Life-Threatening, Hospitalization)
  Sender: FDA-Public Use
  Company Number: GR-JNJFOC-20160528652

PATIENT
  Age: 55 Year
  Sex: Male
  Weight: 88 kg

DRUGS (2)
  1. IMBRUVICA [Suspect]
     Active Substance: IBRUTINIB
     Indication: CHRONIC LYMPHOCYTIC LEUKAEMIA REFRACTORY
     Route: 048
     Dates: start: 20150522, end: 20150527
  2. ZOVIRAX [Concomitant]
     Active Substance: ACYCLOVIR
     Dosage: 200 (UNSPCIFIED UNITS)

REACTIONS (2)
  - Thrombocytopenia [Recovered/Resolved]
  - Haematuria [Recovered/Resolved]

NARRATIVE: CASE EVENT DATE: 20150527
